FAERS Safety Report 5987742-1 (Version None)
Quarter: 2008Q4

REPORT INFORMATION
  Report Type: 
  Country: None (occurrence: None)
  Receive Date: 20081209
  Receipt Date: 20081202
  Transmission Date: 20090506
  Serious: Yes (Life-Threatening)
  Sender: FDA-Public Use
  Company Number: US-GENENTECH-272741

PATIENT
  Sex: Female

DRUGS (1)
  1. ACTIVASE [Suspect]
     Indication: ISCHAEMIC STROKE
     Dosage: 42.5 MG, SINGLE
     Route: 042
     Dates: start: 20081129

REACTIONS (3)
  - ATRIAL FIBRILLATION [None]
  - ELECTROCARDIOGRAM ST SEGMENT ELEVATION [None]
  - NAUSEA [None]
